FAERS Safety Report 17150155 (Version 1)
Quarter: 2019Q4

REPORT INFORMATION
  Report Type: Spontaneous
  Country: US (occurrence: US)
  Receive Date: 20191120
  Receipt Date: 20191120
  Transmission Date: 20200122
  Serious: No
  Sender: FDA-Public Use
  Company Number: None

PATIENT
  Age: 62 Year
  Sex: Female

DRUGS (1)
  1. COSENTYX [Suspect]
     Active Substance: SECUKINUMAB
     Dosage: OTHER
     Route: 058
     Dates: start: 20190501

REACTIONS (4)
  - Eye infection [None]
  - Influenza like illness [None]
  - Stress [None]
  - Psoriasis [None]

NARRATIVE: CASE EVENT DATE: 20191120
